FAERS Safety Report 11052966 (Version 1)
Quarter: 2015Q2

REPORT INFORMATION
  Report Type: Spontaneous
  Country: US (occurrence: US)
  Receive Date: 20150421
  Receipt Date: 20150421
  Transmission Date: 20150821
  Serious: Yes (Hospitalization, Other)
  Sender: FDA-Public Use
  Company Number: US-PFIZER INC-2015132965

PATIENT
  Age: 12 Year
  Sex: Female
  Weight: 41 kg

DRUGS (2)
  1. GENOTROPIN [Suspect]
     Active Substance: SOMATROPIN
     Indication: SMALL FOR DATES BABY
  2. GENOTROPIN [Suspect]
     Active Substance: SOMATROPIN
     Indication: GROWTH HORMONE DEFICIENCY
     Dosage: 3.6 MG, DAILY
     Route: 058
     Dates: start: 20120827, end: 20150412

REACTIONS (2)
  - Lymphoma [Unknown]
  - Leukaemia [Unknown]
